FAERS Safety Report 9226861 (Version 1)
Quarter: 2013Q2

REPORT INFORMATION
  Report Type: Spontaneous
  Country: US (occurrence: US)
  Receive Date: 20130412
  Receipt Date: 20130412
  Transmission Date: 20140414
  Serious: Yes (Hospitalization)
  Sender: FDA-Public Use
  Company Number: US-JNJFOC-20130401561

PATIENT
  Age: 15 Year
  Sex: Male
  Weight: 47.7 kg

DRUGS (5)
  1. LEVAQUIN [Suspect]
     Indication: PHARYNGITIS
     Route: 042
     Dates: start: 20130301, end: 20130302
  2. LEVAQUIN [Suspect]
     Indication: OROPHARYNGEAL PAIN
     Route: 042
     Dates: start: 20130301, end: 20130302
  3. LEVAQUIN [Suspect]
     Indication: PHARYNGITIS
     Route: 048
     Dates: start: 20130302, end: 20130311
  4. LEVAQUIN [Suspect]
     Indication: OROPHARYNGEAL PAIN
     Route: 048
     Dates: start: 20130302, end: 20130311
  5. NAPROXEN [Concomitant]
     Route: 065
     Dates: start: 20130320

REACTIONS (4)
  - Toxicity to various agents [Not Recovered/Not Resolved]
  - Joint effusion [Unknown]
  - Muscle atrophy [Not Recovered/Not Resolved]
  - Tendon disorder [Not Recovered/Not Resolved]
